FAERS Safety Report 6187858-3 (Version None)
Quarter: 2009Q2

REPORT INFORMATION
  Report Type: 
  Country: None (occurrence: None)
  Receive Date: 20090511
  Receipt Date: 20090511
  Transmission Date: 20091009
  Serious: Yes (Other)
  Sender: FDA-Public Use
  Company Number: None

PATIENT
  Sex: Female
  Weight: 64.8644 kg

DRUGS (2)
  1. PROPARACAINE HCL [Suspect]
     Indication: CATARACT
     Dosage: 1 DROP IN EYE PRE-OP
     Dates: start: 20090219
  2. TROPICAMIDE [Suspect]

REACTIONS (4)
  - BLOOD PRESSURE IMMEASURABLE [None]
  - FLUSHING [None]
  - PARAESTHESIA [None]
  - UNRESPONSIVE TO STIMULI [None]
